FAERS Safety Report 6468787-4 (Version None)
Quarter: 2009Q4

REPORT INFORMATION
  Report Type: 
  Country: None (occurrence: None)
  Receive Date: 20091203
  Receipt Date: 20080328
  Transmission Date: 20100525
  Serious: Yes (Death, Other)
  Sender: FDA-Public Use
  Company Number: JP-ELI_LILLY_AND_COMPANY-JP200604002296

PATIENT
  Age: 70 Year
  Sex: Female
  Weight: 47 kg

DRUGS (3)
  1. GEMZAR [Suspect]
     Indication: GASTRIC CANCER RECURRENT
     Dosage: 1000 MG/M2, OTHER
     Route: 042
     Dates: start: 20040501, end: 20050201
  2. CISPLATIN [Concomitant]
     Indication: GASTRIC CANCER RECURRENT
     Dosage: 70 MG/M2, OTHER
     Route: 042
     Dates: start: 20040501, end: 20040101
  3. TS 1                                    /JPN/ [Concomitant]
     Indication: GASTRIC CANCER RECURRENT
     Dosage: 50 MG/M2, OTHER
     Route: 048
     Dates: start: 20040801, end: 20050101

REACTIONS (3)
  - CARBOHYDRATE ANTIGEN 19-9 INCREASED [None]
  - DISSEMINATED INTRAVASCULAR COAGULATION [None]
  - NAUSEA [None]
